FAERS Safety Report 4821658-9 (Version None)
Quarter: 2005Q4

REPORT INFORMATION
  Report Type: 
  Country: None (occurrence: None)
  Receive Date: 20051103
  Receipt Date: 20051103
  Transmission Date: 20060501
  Serious: Yes (Hospitalization)
  Sender: FDA-Public Use
  Company Number: None

PATIENT
  Age: 80 Year
  Sex: Male

DRUGS (16)
  1. RITUXAN [Suspect]
     Indication: NON-HODGKIN'S LYMPHOMA REFRACTORY
     Dosage: 863 MG IV EVERY 21 DAYS
     Route: 042
     Dates: start: 20050126
  2. GALLIUM NITRATE  GENTA, INC. [Suspect]
     Indication: NON-HODGKIN'S LYMPHOMA REFRACTORY
     Dosage: 460 MG IV X7 DAYS Q21DA
     Route: 042
     Dates: start: 20050126, end: 20050202
  3. DECADRON [Concomitant]
  4. PROBENECID [Concomitant]
  5. COLCHICINE [Concomitant]
  6. LASIX [Concomitant]
  7. HYDROCHLOROTHIAZIDE [Concomitant]
  8. ALDACTONE [Concomitant]
  9. FLOMAX [Concomitant]
  10. POTASSIUM [Concomitant]
  11. CELEBREX [Concomitant]
  12. LANOXIN [Concomitant]
  13. MEXILETINE [Concomitant]
  14. MYSOLINE [Concomitant]
  15. BUFFERIN [Concomitant]
  16. SHARK CARTILAGE [Concomitant]

REACTIONS (22)
  - ANGIOPATHY [None]
  - ASTHENIA [None]
  - BLOOD CREATININE INCREASED [None]
  - CEREBRAL ATROPHY [None]
  - CEREBRAL ISCHAEMIA [None]
  - CONFUSIONAL STATE [None]
  - COUGH [None]
  - DEEP VEIN THROMBOSIS [None]
  - DEHYDRATION [None]
  - DIARRHOEA [None]
  - INCREASED BRONCHIAL SECRETION [None]
  - LOSS OF CONSCIOUSNESS [None]
  - ORAL INTAKE REDUCED [None]
  - PLEURAL EFFUSION [None]
  - PNEUMONIA [None]
  - PNEUMONIA ASPIRATION [None]
  - PULMONARY OEDEMA [None]
  - PYREXIA [None]
  - RESPIRATORY DISTRESS [None]
  - RIB FRACTURE [None]
  - SPUTUM CULTURE POSITIVE [None]
  - STAPHYLOCOCCAL INFECTION [None]
